FAERS Safety Report 9555926 (Version 1)
Quarter: 2013Q3

REPORT INFORMATION
  Report Type: Spontaneous
  Country: US (occurrence: None)
  Receive Date: 20130724
  Receipt Date: 20130724
  Transmission Date: 20140515
  Serious: Yes (Hospitalization)
  Sender: FDA-Public Use
  Company Number: PHEH2013US004730

PATIENT
  Age: 46 Year
  Sex: Female

DRUGS (1)
  1. GILENYA (FINGOLIMOD) CAPSULE, 0.5MG [Suspect]
     Indication: MULTIPLE SCLEROSIS
     Route: 048
     Dates: start: 20110214

REACTIONS (5)
  - Multiple sclerosis relapse [None]
  - Blood pressure increased [None]
  - Dizziness [None]
  - Speech disorder [None]
  - Nuclear magnetic resonance imaging abnormal [None]
